FAERS Safety Report 13828512 (Version 1)
Quarter: 2017Q3

REPORT INFORMATION
  Report Type: Spontaneous
  Country: US (occurrence: US)
  Receive Date: 20170802
  Receipt Date: 20170802
  Transmission Date: 20171127
  Serious: Yes (Death)
  Sender: FDA-Public Use
  Company Number: None

PATIENT
  Age: 69 Year
  Sex: Male

DRUGS (1)
  1. ESBRIET [Suspect]
     Active Substance: PIRFENIDONE
     Indication: IDIOPATHIC PULMONARY FIBROSIS
     Dosage: FREQUENCY - 3 CAPSULES 3X PER DAY
     Route: 048
     Dates: start: 20170221, end: 20170616

REACTIONS (1)
  - Death [None]

NARRATIVE: CASE EVENT DATE: 20170727
